FAERS Safety Report 13180700 (Version 2)
Quarter: 2017Q1

REPORT INFORMATION
  Report Type: Spontaneous
  Country: US (occurrence: US)
  Receive Date: 20170202
  Receipt Date: 20170207
  Transmission Date: 20170428
  Serious: Yes (Hospitalization, Other)
  Sender: FDA-Public Use
  Company Number: US-EMD SERONO-8138694

PATIENT
  Age: 32 Year
  Sex: Female

DRUGS (1)
  1. REBIF [Suspect]
     Active Substance: INTERFERON BETA-1A
     Indication: MULTIPLE SCLEROSIS
     Route: 058
     Dates: start: 20161229

REACTIONS (5)
  - Maternal exposure timing unspecified [Recovered/Resolved]
  - Stress [Unknown]
  - Eye pain [Unknown]
  - Abortion spontaneous [Recovered/Resolved]
  - Visual impairment [Unknown]

NARRATIVE: CASE EVENT DATE: 201612
